FAERS Safety Report 8924587 (Version 3)
Quarter: 2012Q4

REPORT INFORMATION
  Report Type: 
  Country: US (occurrence: US)
  Receive Date: 20121126
  Receipt Date: 20121226
  Transmission Date: 20130627
  Serious: No
  Sender: FDA-Public Use
  Company Number: US-PFIZER INC-2012293838

PATIENT
  Age: 49 Year
  Sex: Male
  Weight: 78.01 kg

DRUGS (2)
  1. LYRICA [Suspect]
     Indication: NERVE PAIN
     Dosage: 50 mg, UNK
     Route: 048
     Dates: start: 201206, end: 201207
  2. LYRICA [Suspect]
     Dosage: 75 mg, 2x/day
     Route: 048
     Dates: start: 201207, end: 201211

REACTIONS (5)
  - Drug intolerance [Unknown]
  - Oedema peripheral [Recovered/Resolved]
  - Dysarthria [Not Recovered/Not Resolved]
  - Hypoaesthesia [Not Recovered/Not Resolved]
  - Dizziness [Unknown]
